FAERS Safety Report 22181694 (Version 1)
Quarter: 2023Q2

REPORT INFORMATION
  Report Type: Report from Study
  Country: MX (occurrence: MX)
  Receive Date: 20230406
  Receipt Date: 20230406
  Transmission Date: 20230721
  Serious: Yes (Other)
  Sender: FDA-Public Use
  Company Number: MX-002147023-NVSC2023MX079432

PATIENT
  Sex: Female
  Weight: 72 kg

DRUGS (1)
  1. EXFORGE HCT [Suspect]
     Active Substance: AMLODIPINE BESYLATE\HYDROCHLOROTHIAZIDE\VALSARTAN
     Indication: Hypertension
     Dosage: 1 DOSAGE FORM, QD, ABOUT 11 YEARS AGO
     Route: 048

REACTIONS (5)
  - Diabetes mellitus [Recovering/Resolving]
  - Retinal tear [Unknown]
  - Visual impairment [Unknown]
  - Diabetic retinopathy [Unknown]
  - Fall [Unknown]
